FAERS Safety Report 10012029 (Version 4)
Quarter: 2014Q2

REPORT INFORMATION
  Report Type: Report from Study
  Country: GB (occurrence: GB)
  Receive Date: 20140314
  Receipt Date: 20140627
  Transmission Date: 20141212
  Serious: Yes (Hospitalization)
  Sender: FDA-Public Use
  Company Number: GB-GLAXOSMITHKLINE-B0972800A

PATIENT
  Age: 84 Year
  Sex: Female
  Weight: 56.4 kg

DRUGS (15)
  1. OFATUMUMAB [Suspect]
     Indication: CHRONIC LYMPHOCYTIC LEUKAEMIA
     Route: 042
     Dates: start: 20140212, end: 20140313
  2. CHLORAMBUCIL [Suspect]
     Indication: CHRONIC LYMPHOCYTIC LEUKAEMIA
     Route: 048
     Dates: start: 20140206, end: 20140313
  3. PARACETAMOL [Concomitant]
     Indication: CHRONIC LYMPHOCYTIC LEUKAEMIA
     Route: 048
     Dates: start: 20140212, end: 20140212
  4. CHLORPHENIRAMINE [Concomitant]
     Indication: CHRONIC LYMPHOCYTIC LEUKAEMIA
     Route: 048
     Dates: start: 20140212, end: 20140212
  5. PREDNISOLONE [Concomitant]
     Indication: CHRONIC LYMPHOCYTIC LEUKAEMIA
     Route: 048
     Dates: start: 20140124
  6. ALLOPURINOL [Concomitant]
     Indication: CHRONIC LYMPHOCYTIC LEUKAEMIA
     Route: 048
     Dates: start: 20140205
  7. METOCLOPRAMIDE [Concomitant]
     Indication: CHRONIC LYMPHOCYTIC LEUKAEMIA
     Route: 048
     Dates: start: 20140205
  8. ACICLOVIR [Concomitant]
     Indication: CHRONIC LYMPHOCYTIC LEUKAEMIA
     Route: 048
     Dates: start: 20140124
  9. GRANULOCYTE COLONY-STIMULATING FACTOR NOS [Concomitant]
     Indication: CHRONIC LYMPHOCYTIC LEUKAEMIA
     Route: 058
     Dates: start: 20140219
  10. CIPROFLOXACIN [Concomitant]
     Indication: PROPHYLAXIS
     Dosage: 500MG TWICE PER DAY
     Route: 048
     Dates: start: 20140212
  11. RANITIDINE [Concomitant]
     Indication: PROPHYLAXIS
     Dosage: 150MG PER DAY
     Route: 048
     Dates: start: 20140124
  12. LEVOTHYROXINE [Concomitant]
     Indication: HYPOTHYROIDISM
     Dosage: 100MG PER DAY
     Route: 048
     Dates: start: 20100615
  13. BENDROFLUAZIDE [Concomitant]
     Indication: HYPERTENSION
     Dosage: 2.5MG PER DAY
     Route: 048
     Dates: start: 20030615
  14. LOSARTAN [Concomitant]
     Indication: HYPERTENSION
     Dosage: 50MG PER DAY
     Route: 048
     Dates: start: 20120615
  15. SALBUTAMOL [Concomitant]
     Indication: COUGH
     Dosage: 100MCG AS REQUIRED
     Route: 055
     Dates: start: 20121215

REACTIONS (1)
  - Febrile neutropenia [Recovered/Resolved]
